FAERS Safety Report 20469123 (Version 1)
Quarter: 2022Q1

REPORT INFORMATION
  Report Type: Spontaneous
  Country: US (occurrence: US)
  Receive Date: 20220214
  Receipt Date: 20220214
  Transmission Date: 20220423
  Serious: Yes (Other)
  Sender: FDA-Public Use
  Company Number: US-SANOFI-00967558

PATIENT
  Sex: Male

DRUGS (1)
  1. LANTUS SOLOSTAR [Suspect]
     Active Substance: INSULIN GLARGINE
     Indication: Type 3 diabetes mellitus
     Dosage: 14 IU, QD

REACTIONS (3)
  - Blindness [Unknown]
  - Cataract [Unknown]
  - Pancreatic disorder [Unknown]
